FAERS Safety Report 8974488 (Version 2)
Quarter: 2012Q4

REPORT INFORMATION
  Report Type: 
  Country: CO (occurrence: CO)
  Receive Date: 20121220
  Receipt Date: 20121227
  Transmission Date: 20130627
  Serious: Yes (Hospitalization)
  Sender: FDA-Public Use
  Company Number: CO-PFIZER INC-2012321837

PATIENT
  Age: 87 Year
  Sex: Female

DRUGS (2)
  1. NORVAS [Suspect]
     Indication: HYPERTENSION
     Dosage: 10 mg, 1x/day
     Route: 048
     Dates: start: 1997, end: 2000
  2. NORVAS [Suspect]
     Dosage: 10 mg, 1x/day
     Route: 048
     Dates: start: 2000

REACTIONS (4)
  - Syncope [Recovered/Resolved]
  - Cardiac arrest [Recovered/Resolved]
  - Hyperglycaemia [Not Recovered/Not Resolved]
  - Oedema peripheral [Not Recovered/Not Resolved]
